FAERS Safety Report 9892790 (Version 2)
Quarter: 2014Q1

REPORT INFORMATION
  Report Type: Spontaneous
  Country: US (occurrence: US)
  Receive Date: 20140212
  Receipt Date: 20140219
  Transmission Date: 20141002
  Serious: Yes (Death, Hospitalization, Other)
  Sender: FDA-Public Use
  Company Number: US-BAXTER-2014BAX006480

PATIENT
  Sex: Female

DRUGS (8)
  1. DIANEAL LOW CALCIUM [Suspect]
     Indication: PERITONEAL DIALYSIS
     Route: 033
  2. DIANEAL LOW CALCIUM [Suspect]
     Route: 033
     Dates: end: 20140206
  3. DIANEAL LOW CALCIUM [Suspect]
     Indication: PERITONEAL DIALYSIS
     Route: 033
  4. DIANEAL LOW CALCIUM [Suspect]
     Route: 033
     Dates: end: 20140206
  5. DIANEAL LOW CALCIUM [Suspect]
     Indication: PERITONEAL DIALYSIS
     Route: 033
  6. DIANEAL LOW CALCIUM [Suspect]
     Route: 033
     Dates: end: 20140206
  7. EXTRANEAL [Suspect]
     Indication: PERITONEAL DIALYSIS
     Route: 033
  8. EXTRANEAL [Suspect]
     Route: 033
     Dates: end: 20140206

REACTIONS (6)
  - Systemic lupus erythematosus [Fatal]
  - Calciphylaxis [Unknown]
  - Dyspnoea [Unknown]
  - Hypotension [Unknown]
  - Catheter site swelling [Unknown]
  - Catheter site pain [Unknown]
